FAERS Safety Report 5684475-6 (Version None)
Quarter: 2008Q1

REPORT INFORMATION
  Report Type: 
  Country: None (occurrence: None)
  Receive Date: 20080327
  Receipt Date: 20080327
  Transmission Date: 20080703
  Serious: Yes (Death)
  Sender: FDA-Public Use
  Company Number: None

PATIENT
  Age: 19 Year
  Sex: Female

DRUGS (1)
  1. PROPYLTHIOURACIL [Suspect]
     Indication: HYPERTHYROIDISM

REACTIONS (13)
  - ABDOMINAL PAIN [None]
  - ACUTE HEPATIC FAILURE [None]
  - BLOOD PRESSURE INCREASED [None]
  - BRAIN HERNIATION [None]
  - CONVULSION [None]
  - DECREASED APPETITE [None]
  - MENTAL STATUS CHANGES [None]
  - NAUSEA [None]
  - NEUROLOGICAL EXAMINATION ABNORMAL [None]
  - OCULAR ICTERUS [None]
  - PRURITUS [None]
  - PUPILLARY DISORDER [None]
  - YELLOW SKIN [None]
